FAERS Safety Report 6924327-4 (Version None)
Quarter: 2010Q3

REPORT INFORMATION
  Report Type: 
  Country: None (occurrence: None)
  Receive Date: 20100811
  Receipt Date: 20100811
  Transmission Date: 20110219
  Serious: No
  Sender: FDA-Public Use
  Company Number: None

PATIENT
  Age: 40 Year
  Sex: Male
  Weight: 77.1115 kg

DRUGS (1)
  1. LEVAQUIN [Suspect]
     Indication: PROSTATITIS
     Dosage: 500MG DAILY PO
     Route: 048
     Dates: start: 20100728, end: 20100809

REACTIONS (5)
  - ANXIETY [None]
  - ARTHRALGIA [None]
  - INSOMNIA [None]
  - PRURITUS GENERALISED [None]
  - TENDONITIS [None]
